FAERS Safety Report 6613120-8 (Version None)
Quarter: 2010Q1

REPORT INFORMATION
  Report Type: 
  Country: None (occurrence: None)
  Receive Date: 20100225
  Receipt Date: 20100210
  Transmission Date: 20100710
  Serious: Yes (Hospitalization)
  Sender: FDA-Public Use
  Company Number: 2010000521

PATIENT
  Age: 68 Year
  Sex: Female

DRUGS (3)
  1. ERLOTINIB             (ERLOTINIB) [Suspect]
     Indication: BREAST CANCER METASTATIC
     Dosage: 150 MG, QD, ORAL
     Route: 048
     Dates: start: 20090925
  2. BEVACIZUMAB [Concomitant]
  3. PACLITAXEL [Concomitant]

REACTIONS (8)
  - ABSCESS [None]
  - CELLULITIS [None]
  - CULTURE POSITIVE [None]
  - ERYTHEMA [None]
  - NASAL CONGESTION [None]
  - RASH PUSTULAR [None]
  - STAPHYLOCOCCAL INFECTION [None]
  - SWELLING FACE [None]
